FAERS Safety Report 6783130-9 (Version None)
Quarter: 2010Q2

REPORT INFORMATION
  Report Type: 
  Country: None (occurrence: None)
  Receive Date: 20100622
  Receipt Date: 20100614
  Transmission Date: 20101027
  Serious: Yes (Other)
  Sender: FDA-Public Use
  Company Number: US-JNJFOC-20100605145

PATIENT
  Sex: Male
  Weight: 140.62 kg

DRUGS (7)
  1. DURAGESIC-100 [Suspect]
     Indication: PAIN
     Route: 062
  2. DURAGESIC-100 [Suspect]
     Route: 062
  3. PERCOCET [Concomitant]
     Indication: PAIN
     Dosage: 10/325 MG
     Route: 048
  4. VITAMIN B-12 [Concomitant]
     Indication: PROPHYLAXIS
     Route: 048
  5. ALLEGRA [Concomitant]
     Indication: HYPERSENSITIVITY
     Route: 048
  6. ASPIRIN [Concomitant]
     Indication: CARDIOVASCULAR DISORDER
     Route: 048
  7. IRON [Concomitant]
     Indication: PROPHYLAXIS
     Route: 048

REACTIONS (4)
  - CONSTIPATION [None]
  - DRUG INEFFECTIVE [None]
  - GASTROOESOPHAGEAL REFLUX DISEASE [None]
  - KNEE ARTHROPLASTY [None]
